FAERS Safety Report 8493947-0 (Version None)
Quarter: 2012Q3

REPORT INFORMATION
  Report Type: 
  Country: None (occurrence: None)
  Receive Date: 20120709
  Receipt Date: 20120702
  Transmission Date: 20120928
  Serious: Yes (Other)
  Sender: FDA-Public Use
  Company Number: GB-AMGEN-GBRSP2012041006

PATIENT
  Age: 83 Year
  Weight: 47 kg

DRUGS (3)
  1. CALCIUM CARBONATE [Concomitant]
     Indication: BONE DISORDER
  2. PROLIA [Suspect]
     Indication: OSTEOPOROTIC FRACTURE
     Dosage: UNK
     Dates: start: 20110701
  3. ALFACALCIDOL [Concomitant]
     Indication: BONE DISORDER
     Dosage: 0.25 MUG, QWK

REACTIONS (3)
  - LOW TURNOVER OSTEOPATHY [None]
  - BLOOD CREATININE INCREASED [None]
  - BLOOD CALCIUM ABNORMAL [None]
